FAERS Safety Report 4978941-6 (Version None)
Quarter: 2006Q2

REPORT INFORMATION
  Report Type: 
  Country: None (occurrence: None)
  Receive Date: 20060419
  Receipt Date: 20060419
  Transmission Date: 20061013
  Serious: Yes (Hospitalization)
  Sender: FDA-Public Use
  Company Number: None

PATIENT
  Sex: Female
  Weight: 79.8 kg

DRUGS (9)
  1. GLIADEL [Suspect]
     Indication: GLIOBLASTOMA MULTIFORME
     Dosage: 7.7 MG PER WAFER - MAX OF 8
     Dates: start: 20060317
  2. O6-BENZYLGUANINE (O6BG) [Suspect]
     Indication: GLIOBLASTOMA MULTIFORME
     Dosage: 30 MG/M2 INFUSION X 5 DAYS
     Dates: start: 20060317, end: 20060322
  3. DEXAMETHASONE [Concomitant]
  4. ZANTAC [Concomitant]
  5. KEPPRA [Concomitant]
  6. MEROPENEM [Concomitant]
  7. COLACE [Concomitant]
  8. SENOKOT [Concomitant]
  9. FLORICET [Concomitant]

REACTIONS (6)
  - CSF BACTERIA IDENTIFIED [None]
  - HEADACHE [None]
  - POSTOPERATIVE FEVER [None]
  - PYREXIA [None]
  - VOMITING [None]
  - WHITE BLOOD CELL COUNT DECREASED [None]
